FAERS Safety Report 14783756 (Version 1)
Quarter: 2018Q2

REPORT INFORMATION
  Report Type: Spontaneous
  Country: US (occurrence: US)
  Receive Date: 20180420
  Receipt Date: 20180420
  Transmission Date: 20180711
  Serious: Yes (Other)
  Sender: FDA-Public Use
  Company Number: US-SA-2018SA108654

PATIENT

DRUGS (4)
  1. VITAMIN C [Suspect]
     Active Substance: ASCORBIC ACID
     Route: 065
  2. NASAL SPRAY [Suspect]
     Active Substance: UNSPECIFIED INGREDIENT
     Route: 065
  3. ADVIL [Suspect]
     Active Substance: IBUPROFEN
     Route: 065
  4. ALLEGRA ALLERGY [Suspect]
     Active Substance: FEXOFENADINE HYDROCHLORIDE
     Route: 048

REACTIONS (2)
  - Feeling abnormal [Unknown]
  - Drug abuse [Unknown]
